FAERS Safety Report 4711369-2 (Version None)
Quarter: 2005Q3

REPORT INFORMATION
  Report Type: 
  Country: None (occurrence: None)
  Receive Date: 20050711
  Receipt Date: 20050614
  Transmission Date: 20060218
  Serious: Yes (Other)
  Sender: FDA-Public Use
  Company Number: US-MERCK-0506USA02169

PATIENT
  Sex: Female

DRUGS (4)
  1. VIOXX [Suspect]
     Indication: ARTHRALGIA
     Route: 048
     Dates: start: 20000101
  2. VIOXX [Suspect]
     Route: 048
     Dates: end: 20040901
  3. VIOXX [Suspect]
     Indication: PAIN
     Route: 048
     Dates: start: 20000101
  4. VIOXX [Suspect]
     Route: 048
     Dates: end: 20040901

REACTIONS (3)
  - CEREBELLAR HAEMORRHAGE [None]
  - CEREBRAL HAEMORRHAGE [None]
  - PRESCRIBED OVERDOSE [None]
